FAERS Safety Report 4502110-7 (Version None)
Quarter: 2004Q4

REPORT INFORMATION
  Report Type: 
  Country: None (occurrence: None)
  Receive Date: 20041109
  Receipt Date: 20041022
  Transmission Date: 20050328
  Serious: Yes (Death)
  Sender: FDA-Public Use
  Company Number: EWC040639724

PATIENT
  Age: 47 Year
  Sex: Male
  Weight: 96 kg

DRUGS (5)
  1. ZYPREXA [Suspect]
     Indication: AGITATION
     Dosage: 10 MG/2 DAY
  2. MIDAZOLAM HCL [Concomitant]
  3. HALOPERIDOL [Concomitant]
  4. BIPERIDEN HYDROCHLORIDE TAB [Concomitant]
  5. CLONAZEPAM [Concomitant]

REACTIONS (2)
  - PULMONARY EMBOLISM [None]
  - SEDATION [None]
